FAERS Safety Report 11287826 (Version 1)
Quarter: 2015Q3

REPORT INFORMATION
  Report Type: Spontaneous
  Country: US (occurrence: None)
  Receive Date: 20150720
  Receipt Date: 20150720
  Transmission Date: 20151125
  Serious: Yes (Hospitalization)
  Sender: FDA-Public Use
  Company Number: None

PATIENT
  Age: 69 Year
  Sex: Male
  Weight: 103.7 kg

DRUGS (2)
  1. FUROSEMIDE. [Suspect]
     Active Substance: FUROSEMIDE
     Indication: OEDEMA
     Route: 048
     Dates: start: 20150616, end: 20150706
  2. METOLAZONE. [Suspect]
     Active Substance: METOLAZONE
     Indication: OEDEMA
     Route: 048
     Dates: start: 20150507, end: 20150706

REACTIONS (4)
  - Fall [None]
  - Hypokalaemia [None]
  - Orthostatic hypotension [None]
  - Dizziness [None]

NARRATIVE: CASE EVENT DATE: 20150706
